FAERS Safety Report 7726498-9 (Version None)
Quarter: 2011Q3

REPORT INFORMATION
  Report Type: 
  Country: None (occurrence: None)
  Receive Date: 20110902
  Receipt Date: 20110819
  Transmission Date: 20111222
  Serious: Yes (Other)
  Sender: FDA-Public Use
  Company Number: PHEH2011US02418

PATIENT
  Sex: Female
  Weight: 64.86 kg

DRUGS (2)
  1. ZOMETA [Suspect]
     Indication: OSTEOPOROSIS
     Route: 042
  2. AREDIA [Suspect]
     Indication: OSTEOPOROSIS

REACTIONS (7)
  - NEPHRITIS [None]
  - DYSPNOEA PAROXYSMAL NOCTURNAL [None]
  - VAGINAL INFECTION [None]
  - BLINDNESS [None]
  - CEREBROVASCULAR ACCIDENT [None]
  - LEVATOR SYNDROME [None]
  - TOOTH LOSS [None]
